FAERS Safety Report 10615731 (Version 1)
Quarter: 2014Q4

REPORT INFORMATION
  Report Type: Spontaneous
  Country: US (occurrence: None)
  Receive Date: 20141125
  Receipt Date: 20141125
  Transmission Date: 20150529
  Serious: Yes (Other)
  Sender: FDA-Public Use
  Company Number: None

PATIENT
  Age: 10 Year
  Sex: Male
  Weight: 29.48 kg

DRUGS (1)
  1. REMERON [Suspect]
     Active Substance: MIRTAZAPINE
     Indication: DEPRESSION
     Dosage: ONE HALF PILL FOR FIRST 5^DAYS

REACTIONS (3)
  - Abnormal behaviour [None]
  - Middle insomnia [None]
  - Obsessive-compulsive disorder [None]

NARRATIVE: CASE EVENT DATE: 20141124
